FAERS Safety Report 12317539 (Version 3)
Quarter: 2016Q4

REPORT INFORMATION
  Report Type: Spontaneous
  Country: AT (occurrence: AT)
  Receive Date: 20160429
  Receipt Date: 20161010
  Transmission Date: 20170207
  Serious: Yes (Disabling)
  Sender: FDA-Public Use
  Company Number: AT-ROCHE-1749561

PATIENT
  Age: 77 Year
  Sex: Male

DRUGS (2)
  1. ERIVEDGE [Suspect]
     Active Substance: VISMODEGIB
     Indication: BASAL CELL CARCINOMA
     Route: 048
     Dates: start: 201507, end: 201509
  2. ERIVEDGE [Suspect]
     Active Substance: VISMODEGIB
     Dosage: DOSE REDUCTION DUE TO MUSCLE CRAMPS
     Route: 048
     Dates: start: 201509, end: 201603

REACTIONS (4)
  - Paraplegia [Not Recovered/Not Resolved]
  - Muscle spasms [Unknown]
  - Squamous cell carcinoma [Not Recovered/Not Resolved]
  - Metastatic squamous cell carcinoma [Not Recovered/Not Resolved]

NARRATIVE: CASE EVENT DATE: 201509
